FAERS Safety Report 20573797 (Version 1)
Quarter: 2022Q1

REPORT INFORMATION
  Report Type: Spontaneous
  Country: US (occurrence: US)
  Receive Date: 20220309
  Receipt Date: 20220309
  Transmission Date: 20220423
  Serious: No
  Sender: FDA-Public Use
  Company Number: US-VERTEX PHARMACEUTICALS-2022-003788

PATIENT
  Age: 7 Year
  Sex: Male

DRUGS (1)
  1. TRIKAFTA [Suspect]
     Active Substance: ELEXACAFTOR\IVACAFTOR\TEZACAFTOR
     Indication: Cystic fibrosis
     Dosage: 50 MG ELEXA/ 25 MG TEZA/ 37.5 MG IVA AND 75 MG IVA, FREQ UNK
     Route: 048
     Dates: start: 202112

REACTIONS (2)
  - Irritability [Unknown]
  - Sleep disorder [Unknown]
